FAERS Safety Report 25260236 (Version 2)
Quarter: 2025Q2

REPORT INFORMATION
  Report Type: Spontaneous
  Country: US (occurrence: US)
  Receive Date: 20250501
  Receipt Date: 20250506
  Transmission Date: 20250717
  Serious: No
  Sender: TEIKOKU
  Company Number: US-TPU-TPU-2025-00171

PATIENT
  Sex: Female

DRUGS (1)
  1. LIDOCAINE PATCH [Suspect]
     Active Substance: LIDOCAINE
     Indication: Back pain

REACTIONS (2)
  - Pain in extremity [Unknown]
  - Drug ineffective for unapproved indication [Unknown]
